FAERS Safety Report 12811876 (Version 4)
Quarter: 2018Q4

REPORT INFORMATION
  Report Type: Spontaneous
  Country: US (occurrence: US)
  Receive Date: 20161005
  Receipt Date: 20181126
  Transmission Date: 20190204
  Serious: Yes (Other)
  Sender: FDA-Public Use
  Company Number: US-SA-2016SA165556

PATIENT
  Age: 78 Year
  Sex: Female
  Weight: 89.3 kg

DRUGS (15)
  1. SALBUTAMOL SULFATE [Concomitant]
     Active Substance: ALBUTEROL SULFATE
     Dosage: 1 DF,PRN
     Route: 055
     Dates: start: 20151023
  2. SERTRALINE HYDROCHLORIDE. [Concomitant]
     Active Substance: SERTRALINE HYDROCHLORIDE
     Dosage: 1 DF,QD
     Route: 048
     Dates: start: 20160229
  3. UBIDECARENONE [Concomitant]
     Active Substance: UBIDECARENONE
     Dosage: 1 DF,QD
     Route: 048
     Dates: start: 20151023
  4. VITAMIN D3 [Concomitant]
     Active Substance: CHOLECALCIFEROL
     Dosage: 1 DF,QD
     Route: 048
     Dates: start: 20151023
  5. PRALUENT [Suspect]
     Active Substance: ALIROCUMAB
     Indication: HYPERLIPIDAEMIA
  6. PRALUENT [Suspect]
     Active Substance: ALIROCUMAB
     Indication: HYPERLIPIDAEMIA
  7. CALCIUM [Concomitant]
     Active Substance: CALCIUM
     Dosage: 1 DF,QD
     Route: 048
     Dates: start: 20151023
  8. NITROSTAT [Concomitant]
     Active Substance: NITROGLYCERIN
     Indication: CHEST PAIN
     Dosage: UNK UNK,PRN
     Route: 060
     Dates: start: 20151028
  9. PRALUENT [Suspect]
     Active Substance: ALIROCUMAB
     Indication: HYPERLIPIDAEMIA
     Dosage: 75 MG,QOW
     Route: 058
     Dates: start: 20160419
  10. DIOVAN [Concomitant]
     Active Substance: VALSARTAN
     Dosage: 1 DF,QD
     Route: 048
     Dates: start: 20151023
  11. ZANTAC [Concomitant]
     Active Substance: RANITIDINE HYDROCHLORIDE
     Dosage: 150 MG CAPS
     Dates: start: 20160414
  12. ACETYLSALICYLIC ACID [Concomitant]
     Active Substance: ASPIRIN
     Dosage: 1 DF,QD
     Dates: start: 20151113
  13. FLOVENT [Concomitant]
     Active Substance: FLUTICASONE PROPIONATE
     Dosage: 1 DF,BID
     Route: 055
     Dates: start: 20151023
  14. WARFARIN SODIUM. [Concomitant]
     Active Substance: WARFARIN SODIUM
     Dosage: 5 MG ORAL TABLET; TAKE AS DIRECTED BY PCP
     Route: 048
     Dates: start: 20151023
  15. WARFARIN SODIUM. [Concomitant]
     Active Substance: WARFARIN SODIUM
     Dosage: 2.5 MG ORAL TABLET; TAKE AS DIRECTED BY PCP
     Route: 048
     Dates: start: 20151113

REACTIONS (6)
  - Hallucination [Recovered/Resolved]
  - Swelling [Unknown]
  - Insomnia [Unknown]
  - Deafness [Recovered/Resolved]
  - Pigmentation disorder [Unknown]
  - Condition aggravated [Recovered/Resolved]

NARRATIVE: CASE EVENT DATE: 2016
